FAERS Safety Report 10464547 (Version 2)
Quarter: 2015Q2

REPORT INFORMATION
  Report Type: Spontaneous
  Country: US (occurrence: US)
  Receive Date: 20140919
  Receipt Date: 20150626
  Transmission Date: 20150821
  Serious: Yes (Other)
  Sender: FDA-Public Use
  Company Number: US-UCBSA-2014011455

PATIENT
  Age: 42 Year
  Sex: Female

DRUGS (1)
  1. CIMZIA [Suspect]
     Active Substance: CERTOLIZUMAB PEGOL
     Indication: CROHN^S DISEASE
     Dosage: 400 MG, EV 4 WEEKS
     Dates: start: 20081217, end: 201409

REACTIONS (1)
  - Hernia [Not Recovered/Not Resolved]

NARRATIVE: CASE EVENT DATE: 201409
